FAERS Safety Report 7436016-0 (Version None)
Quarter: 2011Q2

REPORT INFORMATION
  Report Type: 
  Country: None (occurrence: None)
  Receive Date: 20110425
  Receipt Date: 20090727
  Transmission Date: 20111010
  Serious: Yes (Hospitalization, Other)
  Sender: FDA-Public Use
  Company Number: DE-GENENTECH-317015

PATIENT
  Sex: Female

DRUGS (1)
  1. LUCENTIS [Suspect]
     Indication: MACULAR DEGENERATION
     Dosage: UNK
     Route: 031
     Dates: start: 20090210

REACTIONS (11)
  - MYOCARDIAL INFARCTION [None]
  - HERPES ZOSTER [None]
  - EYE DISORDER [None]
  - HYPERTENSION [None]
  - CATARACT [None]
  - VISION BLURRED [None]
  - MALAISE [None]
  - BLOOD PRESSURE DECREASED [None]
  - VISUAL IMPAIRMENT [None]
  - GASTROENTERITIS VIRAL [None]
  - VISUAL ACUITY REDUCED [None]
